FAERS Safety Report 12471737 (Version 1)
Quarter: 2016Q2

REPORT INFORMATION
  Report Type: Spontaneous
  Country: US (occurrence: None)
  Receive Date: 20160615
  Receipt Date: 20160615
  Transmission Date: 20160815
  Serious: No
  Sender: FDA-Public Use
  Company Number: None

PATIENT
  Age: 56 Year
  Sex: Female
  Weight: 87 kg

DRUGS (1)
  1. INTRON A [Suspect]
     Active Substance: INTERFERON ALFA-2B
     Dosage: 800 MU
     Dates: end: 20140207

REACTIONS (4)
  - Metastatic malignant melanoma [None]
  - Metastases to central nervous system [None]
  - Metastases to lung [None]
  - Metastases to spine [None]

NARRATIVE: CASE EVENT DATE: 20150627
